FAERS Safety Report 6622289-0 (Version None)
Quarter: 2010Q1

REPORT INFORMATION
  Report Type: 
  Country: None (occurrence: None)
  Receive Date: 20100310
  Receipt Date: 20100223
  Transmission Date: 20100710
  Serious: Yes (Hospitalization)
  Sender: FDA-Public Use
  Company Number: US-ELI_LILLY_AND_COMPANY-US200908005270

PATIENT
  Sex: Female

DRUGS (11)
  1. FORTEO [Suspect]
     Dosage: UNK, UNKNOWN
     Route: 065
  2. CRESTOR [Concomitant]
  3. ASPIRIN C [Concomitant]
  4. COSOPT [Concomitant]
     Route: 048
  5. XALATAN [Concomitant]
  6. NABUMETONE [Concomitant]
  7. VITAMIN B-12 [Concomitant]
  8. FOLIC ACID [Concomitant]
  9. CALCIUM [Concomitant]
  10. VITAMIN D [Concomitant]
  11. BACLOFEN [Concomitant]

REACTIONS (8)
  - ASTHENIA [None]
  - CARDIAC DISORDER [None]
  - CHEST DISCOMFORT [None]
  - DYSPNOEA [None]
  - FATIGUE [None]
  - INJECTION SITE HAEMORRHAGE [None]
  - PAIN [None]
  - STRESS [None]
